FAERS Safety Report 7763875-4 (Version None)
Quarter: 2011Q3

REPORT INFORMATION
  Report Type: 
  Country: None (occurrence: None)
  Receive Date: 20110919
  Receipt Date: 20110914
  Transmission Date: 20111222
  Serious: Yes (Hospitalization)
  Sender: FDA-Public Use
  Company Number: 2011SP041359

PATIENT
  Sex: Female

DRUGS (2)
  1. RISPERDAL [Suspect]
  2. REMERON [Suspect]
     Indication: DEPRESSIVE SYMPTOM
     Dosage: 15 MG;QD;PO
     Route: 048
     Dates: start: 20110822, end: 20110825

REACTIONS (2)
  - NEUROLEPTIC MALIGNANT SYNDROME [None]
  - TREATMENT NONCOMPLIANCE [None]
